FAERS Safety Report 6115385-8 (Version None)
Quarter: 2009Q1

REPORT INFORMATION
  Report Type: 
  Country: None (occurrence: None)
  Receive Date: 20090313
  Receipt Date: 20090303
  Transmission Date: 20090719
  Serious: Yes (Hospitalization, Other)
  Sender: FDA-Public Use
  Company Number: PHHY2009CA06760

PATIENT
  Sex: Female

DRUGS (5)
  1. CLOZARIL [Suspect]
     Indication: DEPRESSION
     Dosage: 125 MG
     Route: 048
     Dates: start: 20070101, end: 20090128
  2. CLOZARIL [Suspect]
     Indication: OBSESSIVE-COMPULSIVE DISORDER
     Dosage: 30 TABLETS (25 MG)
  3. CLOZARIL [Suspect]
     Dosage: UNK
  4. SEROQUEL [Concomitant]
     Dosage: UNK
     Dates: start: 20060101
  5. CELEXA [Concomitant]
     Dosage: UNK
     Dates: start: 20060101

REACTIONS (3)
  - DELIRIUM [None]
  - OBSESSIVE-COMPULSIVE DISORDER [None]
  - OVERDOSE [None]
